FAERS Safety Report 10244287 (Version 2)
Quarter: 2014Q3

REPORT INFORMATION
  Report Type: Spontaneous
  Country: GB (occurrence: GB)
  Receive Date: 20140618
  Receipt Date: 20140715
  Transmission Date: 20150326
  Serious: Yes (Other)
  Sender: FDA-Public Use
  Company Number: GB-ASTELLAS-2014EU007638

PATIENT
  Sex: Male

DRUGS (2)
  1. MORPHIN                            /00036302/ [Concomitant]
     Indication: PALLIATIVE CARE
     Route: 048
     Dates: start: 20140502
  2. VESICARE [Suspect]
     Active Substance: SOLIFENACIN SUCCINATE
     Indication: PRODUCT USED FOR UNKNOWN INDICATION
     Dosage: UNK, UNKNOWN FREQ.
     Route: 065

REACTIONS (2)
  - Urinary bladder haemorrhage [Unknown]
  - Haematuria [Unknown]
